FAERS Safety Report 8494610-2 (Version None)
Quarter: 2012Q3

REPORT INFORMATION
  Report Type: 
  Country: None (occurrence: None)
  Receive Date: 20120709
  Receipt Date: 20120627
  Transmission Date: 20120928
  Serious: Yes (Other)
  Sender: FDA-Public Use
  Company Number: US-JNJFOC-20120613986

PATIENT
  Sex: Female
  Weight: 90.72 kg

DRUGS (9)
  1. BIOTIN [Concomitant]
     Indication: DRY EYE
     Route: 065
  2. CEVIMELINE [Concomitant]
     Indication: DRY MOUTH
     Route: 065
  3. FOLIC ACID [Concomitant]
     Indication: RED BLOOD CELL COUNT DECREASED
     Route: 048
     Dates: start: 20000101
  4. LISINOPRIL [Concomitant]
     Indication: HYPERTENSION
     Route: 048
  5. REMICADE [Suspect]
     Indication: RHEUMATOID ARTHRITIS
     Route: 042
  6. FISH OIL [Concomitant]
     Route: 048
  7. METHOTREXATE [Concomitant]
     Indication: RHEUMATOID ARTHRITIS
     Route: 048
  8. REMICADE [Suspect]
     Route: 042
  9. UNKNOWN MEDICATION [Suspect]
     Indication: BLOOD CHOLESTEROL INCREASED
     Route: 065

REACTIONS (8)
  - RHEUMATOID ARTHRITIS [None]
  - GLAUCOMA [None]
  - OSTEOPOROSIS [None]
  - HEARING IMPAIRED [None]
  - ADVERSE EVENT [None]
  - NEPHROLITHIASIS [None]
  - MULTIPLE ALLERGIES [None]
  - DEPRESSION [None]
